FAERS Safety Report 9321410 (Version 1)
Quarter: 2013Q2

REPORT INFORMATION
  Report Type: Spontaneous
  Country: US (occurrence: US)
  Receive Date: 20130531
  Receipt Date: 20130531
  Transmission Date: 20140414
  Serious: Yes (Hospitalization)
  Sender: FDA-Public Use
  Company Number: US-PFIZER INC-2013162848

PATIENT
  Age: 68 Year
  Sex: Female

DRUGS (1)
  1. INLYTA [Suspect]
     Indication: NEOPLASM MALIGNANT
     Dosage: 5 MG 2 TIMES A DAY
     Route: 048
     Dates: start: 20130419

REACTIONS (3)
  - Blood thyroid stimulating hormone decreased [Unknown]
  - Electrolyte imbalance [Unknown]
  - Hypertension [Unknown]
